FAERS Safety Report 16719942 (Version 1)
Quarter: 2019Q3

REPORT INFORMATION
  Report Type: Spontaneous
  Country: US (occurrence: US)
  Receive Date: 20190820
  Receipt Date: 20190820
  Transmission Date: 20191005
  Serious: Yes (Other)
  Sender: FDA-Public Use
  Company Number: US-PFIZER INC-2019351686

PATIENT
  Age: 38 Year
  Sex: Male
  Weight: 83.9 kg

DRUGS (3)
  1. ADVIL LIQUI-GELS [Suspect]
     Active Substance: IBUPROFEN
     Indication: LIMB INJURY
     Dosage: 2 DF, 1X/DAY (LLST NIGHT)
  2. ADVIL LIQUI-GELS [Suspect]
     Active Substance: IBUPROFEN
     Dosage: UNK, AS NEEDED (TAKING THIS FOR LAST 4-5 DAYS AS NEEDED BASIS)
  3. ATENOLOL. [Concomitant]
     Active Substance: ATENOLOL
     Indication: HYPERTENSION
     Dosage: 12.5 MG, 1X/DAY [QD (ONCE A DAY)]

REACTIONS (3)
  - Mutism [Unknown]
  - Feeding disorder [Unknown]
  - Swollen tongue [Recovering/Resolving]
